FAERS Safety Report 23701257 (Version 1)
Quarter: 2024Q2

REPORT INFORMATION
  Report Type: Spontaneous
  Country: DE (occurrence: DE)
  Receive Date: 20240403
  Receipt Date: 20240403
  Transmission Date: 20240716
  Serious: Yes (Other)
  Sender: FDA-Public Use
  Company Number: None

PATIENT
  Sex: Female

DRUGS (5)
  1. OLANZAPINE [Suspect]
     Active Substance: OLANZAPINE
     Indication: Product used for unknown indication
     Dosage: 1-0-1
  2. TAVOR (LORAZEPAM) [Suspect]
     Active Substance: LORAZEPAM
     Indication: Product used for unknown indication
     Dates: start: 2019
  3. PERAZINE DIMALONATE [Suspect]
     Active Substance: PERAZINE DIMALONATE
     Indication: Product used for unknown indication
     Dosage: 1-0-1
  4. AKINETON [Suspect]
     Active Substance: BIPERIDEN HYDROCHLORIDE
     Indication: Product used for unknown indication
     Dosage: ORALLY AND ALSO AS AN INJECTION
     Route: 048
  5. HALOPERIDOL [Suspect]
     Active Substance: HALOPERIDOL
     Indication: Product used for unknown indication

REACTIONS (4)
  - Petit mal epilepsy [Unknown]
  - Epilepsy [Unknown]
  - Vomiting [Unknown]
  - Weight increased [Unknown]
